FAERS Safety Report 5195230-8 (Version None)
Quarter: 2006Q4

REPORT INFORMATION
  Report Type: 
  Country: None (occurrence: None)
  Receive Date: 20061229
  Receipt Date: 20061222
  Transmission Date: 20070319
  Serious: Yes (Hospitalization)
  Sender: FDA-Public Use
  Company Number: JP-MERCK-0612USA03721

PATIENT
  Age: 34 Year
  Sex: Female

DRUGS (11)
  1. SINGULAIR [Suspect]
     Route: 048
     Dates: start: 20061206, end: 20061211
  2. CLARITHROMYCIN [Suspect]
     Route: 048
     Dates: start: 20061206, end: 20061211
  3. CARBOCYSTEINE [Suspect]
     Route: 048
     Dates: start: 20061206, end: 20061211
  4. DEXTROMETHORPHAN [Suspect]
     Route: 048
     Dates: start: 20061206, end: 20061211
  5. MIRADOL [Concomitant]
     Route: 048
  6. ALPRAZOLAM [Concomitant]
     Route: 048
  7. RIVOTRIL [Concomitant]
     Route: 048
  8. ROHYPNOL [Concomitant]
     Route: 048
  9. VEGETAMIN B [Concomitant]
     Route: 048
  10. ZOLPIDEM TARTRATE [Concomitant]
     Route: 048
  11. VOLTAREN [Concomitant]
     Route: 065
     Dates: start: 20061214, end: 20061216

REACTIONS (2)
  - MEASLES [None]
  - PYREXIA [None]
